FAERS Safety Report 5398810-X (Version None)
Quarter: 2007Q3

REPORT INFORMATION
  Report Type: 
  Country: None (occurrence: None)
  Receive Date: 20070725
  Receipt Date: 20070725
  Transmission Date: 20080115
  Serious: Yes (Hospitalization)
  Sender: FDA-Public Use
  Company Number: None

PATIENT
  Age: 56 Year
  Sex: Female
  Weight: 110.9952 kg

DRUGS (1)
  1. VESIPAQUE TAB [Suspect]
     Indication: SYSTEMIC LUPUS ERYTHEMATOSUS
     Dosage: 110 CC ONE TIME IV
     Route: 042
     Dates: start: 20070531

REACTIONS (2)
  - HYPOTENSION [None]
  - WHITE BLOOD CELL COUNT DECREASED [None]
